FAERS Safety Report 14191367 (Version 1)
Quarter: 2017Q4

REPORT INFORMATION
  Report Type: Spontaneous
  Country: US (occurrence: US)
  Receive Date: 20171115
  Receipt Date: 20171115
  Transmission Date: 20180321
  Serious: Yes (Hospitalization, Other)
  Sender: FDA-Public Use
  Company Number: US-MYLANLABS-2017M1071459

PATIENT
  Age: 9 Year
  Sex: Female

DRUGS (5)
  1. SIROLIMUS. [Suspect]
     Active Substance: SIROLIMUS
     Indication: IMMUNOSUPPRESSANT DRUG THERAPY
     Dosage: BEFORE 15-64 DAYS OF ADMISSION HER TROUGH LEVEL RANGED BETWEEN 9.9- 12.1 NG/ML
     Route: 065
  2. TACROLIMUS. [Suspect]
     Active Substance: TACROLIMUS
     Dosage: BEFORE 0-2 DAYS OF ADMISSION HER TROUGH LEVEL RANGED BETWEEN 7-10.7NG/ML
     Route: 065
  3. TACROLIMUS. [Suspect]
     Active Substance: TACROLIMUS
     Dosage: BEFORE 15-64 DAYS OF ADMISSION HER TROUGH LEVEL RANGED BETWEEN 3.4-4.6NG/ML
     Route: 065
  4. AZATHIOPRINE. [Suspect]
     Active Substance: AZATHIOPRINE
     Indication: IMMUNOSUPPRESSANT DRUG THERAPY
     Route: 065
  5. TACROLIMUS. [Suspect]
     Active Substance: TACROLIMUS
     Indication: IMMUNOSUPPRESSANT DRUG THERAPY
     Dosage: BEFORE 71-397 DAYS OF ADMISSION HER TROUGH LEVEL RANGED BETWEEN 7.3- 13.4NG/ML
     Route: 065

REACTIONS (1)
  - Post transplant lymphoproliferative disorder [Recovering/Resolving]
